FAERS Safety Report 6150821-2 (Version None)
Quarter: 2009Q2

REPORT INFORMATION
  Report Type: 
  Country: None (occurrence: None)
  Receive Date: 20090408
  Receipt Date: 20090320
  Transmission Date: 20091009
  Serious: Yes (Hospitalization)
  Sender: FDA-Public Use
  Company Number: 2009AL001682

PATIENT
  Sex: Female

DRUGS (8)
  1. DIGOXIN [Suspect]
     Dosage: 0.25MG, DAILY, PO
     Route: 048
     Dates: start: 20000101, end: 20090203
  2. DIOVAN [Concomitant]
  3. SIMVASTATIN [Concomitant]
  4. INSULIN [Concomitant]
  5. TRIAMTERENE [Concomitant]
  6. ATENOLOL [Concomitant]
  7. OMEPRAZOLE [Concomitant]
  8. SERTRALINE [Concomitant]

REACTIONS (3)
  - ECONOMIC PROBLEM [None]
  - EMOTIONAL DISORDER [None]
  - PAIN [None]
